FAERS Safety Report 8940042 (Version 1)
Quarter: 2012Q4

REPORT INFORMATION
  Report Type: 
  Country: CN (occurrence: CN)
  Receive Date: 20121203
  Receipt Date: 20121203
  Transmission Date: 20130627
  Serious: Yes (Other)
  Sender: FDA-Public Use
  Company Number: CN-JNJFOC-20121114211

PATIENT
  Age: 28 Year
  Sex: Female

DRUGS (2)
  1. DAKTARIN [Suspect]
     Route: 061
  2. DAKTARIN [Suspect]
     Indication: VULVOVAGINAL MYCOTIC INFECTION
     Dosage: miconazole nitrate cream (20 gram/gram) every evening before bedtime for 1 week
     Route: 061
     Dates: start: 201209, end: 201209

REACTIONS (3)
  - Angioedema [Recovered/Resolved]
  - Application site pain [Recovered/Resolved]
  - Application site pruritus [Not Recovered/Not Resolved]
